FAERS Safety Report 24088738 (Version 1)
Quarter: 2024Q3

REPORT INFORMATION
  Report Type: Spontaneous
  Country: US (occurrence: US)
  Receive Date: 20240715
  Receipt Date: 20240715
  Transmission Date: 20241017
  Serious: Yes (Other)
  Sender: STEMLINE THERAPEUTICS
  Company Number: US-Stemline Therapeutics, Inc.-2024ST004144

PATIENT
  Age: 63 Year
  Sex: Female

DRUGS (1)
  1. ORSERDU [Suspect]
     Active Substance: ELACESTRANT
     Indication: Product used for unknown indication
     Route: 048
     Dates: start: 20240612

REACTIONS (8)
  - Thrombosis [Unknown]
  - Poor quality sleep [Unknown]
  - Blood creatine increased [Unknown]
  - Gastroenteritis viral [Unknown]
  - Pain in extremity [Unknown]
  - Decreased appetite [Unknown]
  - Diarrhoea [Unknown]
  - Abdominal pain upper [Unknown]
